FAERS Safety Report 23402495 (Version 1)
Quarter: 2024Q1

REPORT INFORMATION
  Report Type: Spontaneous
  Country: RU (occurrence: RU)
  Receive Date: 20240115
  Receipt Date: 20240115
  Transmission Date: 20240410
  Serious: Yes (Other)
  Sender: FDA-Public Use
  Company Number: RU-SA-SAC00000000333020

PATIENT
  Age: 71 Year
  Sex: Male

DRUGS (1)
  1. PRALUENT [Suspect]
     Active Substance: ALIROCUMAB
     Indication: Product used for unknown indication
     Dosage: 150 MG, BIM
     Route: 065
     Dates: start: 2023

REACTIONS (2)
  - Amyloidosis [Unknown]
  - Blood creatinine increased [Unknown]
